FAERS Safety Report 7486318-7 (Version None)
Quarter: 2011Q2

REPORT INFORMATION
  Report Type: 
  Country: None (occurrence: None)
  Receive Date: 20110517
  Receipt Date: 20110503
  Transmission Date: 20111010
  Serious: Yes (Hospitalization)
  Sender: FDA-Public Use
  Company Number: US-JNJFOC-20110202101

PATIENT
  Sex: Female
  Weight: 29.8 kg

DRUGS (7)
  1. REMICADE [Suspect]
     Route: 042
     Dates: start: 20101227
  2. MULTIVITAMINS WITH IRON [Concomitant]
  3. PREDNISONE TAB [Concomitant]
  4. REMICADE [Suspect]
     Indication: CROHN'S DISEASE
     Route: 042
     Dates: start: 20101025
  5. PROTOPIC [Concomitant]
  6. REMICADE [Suspect]
     Route: 042
     Dates: start: 20100913
  7. MESALAMINE [Concomitant]

REACTIONS (2)
  - ILEAL STENOSIS [None]
  - HYDRONEPHROSIS [None]
